FAERS Safety Report 8880640 (Version 1)
Quarter: 2012Q4

REPORT INFORMATION
  Report Type: Report from Study
  Country: CA (occurrence: CA)
  Receive Date: 20121031
  Receipt Date: 20121031
  Transmission Date: 20130627
  Serious: Yes (Death)
  Sender: FDA-Public Use
  Company Number: CA-ROCHE-1150314

PATIENT
  Sex: Male
  Weight: 110 kg

DRUGS (10)
  1. BEVACIZUMAB [Suspect]
     Indication: GLIOBLASTOMA
     Route: 042
     Dates: start: 20111201, end: 20111215
  2. LIPITOR [Concomitant]
  3. DECADRON [Concomitant]
  4. DILANTIN [Concomitant]
  5. KEPPRA [Concomitant]
  6. ZANTAC [Concomitant]
  7. TEMODAL [Concomitant]
  8. CILENGITIDE [Concomitant]
  9. CIALIS [Concomitant]
  10. METHYLPREDNISOLONE [Concomitant]
     Indication: PREMEDICATION
     Route: 042
     Dates: start: 20111201, end: 20111215

REACTIONS (1)
  - Death [Fatal]
